FAERS Safety Report 24231940 (Version 1)
Quarter: 2024Q3

REPORT INFORMATION
  Report Type: Spontaneous
  Country: US (occurrence: US)
  Receive Date: 20240821
  Receipt Date: 20240821
  Transmission Date: 20241017
  Serious: Yes (Other)
  Sender: AMGEN
  Company Number: US-AMGEN-USASP2024163222

PATIENT

DRUGS (6)
  1. PEGFILGRASTIM [Suspect]
     Active Substance: PEGFILGRASTIM
     Indication: Lymphoma
     Dosage: 6 MILLIGRAM (DAY 3) OF A 21 -DAY CYCLE
     Route: 065
  2. ROMIDEPSIN [Concomitant]
     Active Substance: ROMIDEPSIN
     Indication: Lymphoma
     Dosage: 10 MILLIGRAM/SQ. METER (DAY 1)
     Route: 065
  3. ROMIDEPSIN [Concomitant]
     Active Substance: ROMIDEPSIN
     Dosage: UNK (DAY 2)
     Route: 065
  4. GEMCITABINE [Concomitant]
     Active Substance: GEMCITABINE
     Indication: Lymphoma
     Dosage: 1000 MILLIGRAM/SQ. METER (DAY 1))
     Route: 065
  5. OXALIPLATIN [Concomitant]
     Active Substance: OXALIPLATIN
     Indication: Lymphoma
     Dosage: 100 MILLIGRAM/SQ. METER (DAY 1))
     Route: 065
  6. DEXAMETHASONE [Concomitant]
     Active Substance: DEXAMETHASONE
     Indication: Lymphoma
     Dosage: 20 MILLIGRAM (DAYS 1-4)
     Route: 065

REACTIONS (24)
  - Neutropenia [Unknown]
  - Anaemia [Unknown]
  - Febrile neutropenia [Unknown]
  - Troponin increased [Unknown]
  - Haemorrhage [Unknown]
  - Hyperglycaemia [Unknown]
  - Vomiting [Unknown]
  - Sepsis [Unknown]
  - Tumour lysis syndrome [Unknown]
  - Peripheral sensory neuropathy [Unknown]
  - Thrombocytopenia [Unknown]
  - Hyperuricaemia [Unknown]
  - Pneumonia [Unknown]
  - Upper respiratory tract infection [Unknown]
  - Therapy partial responder [Unknown]
  - Electrolyte imbalance [Unknown]
  - Hepatic function abnormal [Unknown]
  - Fatigue [Unknown]
  - Diarrhoea [Unknown]
  - Blood creatinine increased [Unknown]
  - Constipation [Unknown]
  - Nausea [Unknown]
  - Pyrexia [Unknown]
  - Headache [Unknown]
